FAERS Safety Report 5713000-6 (Version None)
Quarter: 2008Q2

REPORT INFORMATION
  Report Type: 
  Country: None (occurrence: None)
  Receive Date: 20080422
  Receipt Date: 20080411
  Transmission Date: 20081010
  Serious: No
  Sender: FDA-Public Use
  Company Number: BR-ROCHE-524370

PATIENT
  Sex: Female
  Weight: 53 kg

DRUGS (3)
  1. ROACUTAN [Suspect]
     Indication: ACNE
     Dosage: STRENGTH AND FORMULATION REPORTED AS 10-20 MG/CAP.
     Route: 048
     Dates: start: 20070101, end: 20070901
  2. PERLUTAN [Concomitant]
     Indication: CONTRACEPTION
     Dates: end: 20070101
  3. PERLUTAN [Concomitant]
     Dates: end: 20070101

REACTIONS (3)
  - DRUG EXPOSURE DURING PREGNANCY [None]
  - NO ADVERSE EVENT [None]
  - PREGNANCY [None]
